FAERS Safety Report 11877960 (Version 1)
Quarter: 2015Q4

REPORT INFORMATION
  Report Type: Spontaneous
  Country: TH (occurrence: TH)
  Receive Date: 20151230
  Receipt Date: 20151230
  Transmission Date: 20160305
  Serious: Yes (Other)
  Sender: FDA-Public Use
  Company Number: TH-SUN PHARMACEUTICAL INDUSTRIES LTD-2015R1-108575

PATIENT
  Age: 35 Year
  Sex: Female

DRUGS (1)
  1. PROPYLTHIOURACIL. [Suspect]
     Active Substance: PROPYLTHIOURACIL
     Indication: HYPERTHYROIDISM
     Route: 065

REACTIONS (6)
  - Antineutrophil cytoplasmic antibody [Unknown]
  - Pulmonary haemorrhage [Unknown]
  - Anti-glomerular basement membrane antibody [Unknown]
  - Vasculitis [Unknown]
  - Pulmonary renal syndrome [Unknown]
  - Glomerulonephritis [Unknown]
